FAERS Safety Report 8586568-2 (Version None)
Quarter: 2012Q3

REPORT INFORMATION
  Report Type: 
  Country: None (occurrence: None)
  Receive Date: 20120730
  Receipt Date: 20120716
  Transmission Date: 20120928
  Serious: Yes (Life-Threatening, Hospitalization)
  Sender: FDA-Public Use
  Company Number: FK201200515

PATIENT
  Age: 48 Year
  Sex: Female
  Weight: 98 kg

DRUGS (7)
  1. FOLIC ACID [Concomitant]
  2. CYCLIZINE (CYCLIZINE) [Concomitant]
  3. CODEIN (CODEINE PHOSPHATE) [Concomitant]
  4. DALTEPARIN SODIUM [Concomitant]
  5. FERROUS SULFATE TAB [Concomitant]
  6. PIPERACILLIN AND TAZOBACTAM [Suspect]
     Indication: NEPHRITIS
     Dosage: 4.5 GM, 3 IN 1 D
     Dates: start: 20111106, end: 20111124
  7. ACETAMINOPHEN [Concomitant]

REACTIONS (2)
  - THROMBOCYTOPENIA [None]
  - PETECHIAE [None]
